FAERS Safety Report 21059276 (Version 1)
Quarter: 2022Q3

REPORT INFORMATION
  Report Type: Spontaneous
  Country: JP (occurrence: JP)
  Receive Date: 20220708
  Receipt Date: 20220708
  Transmission Date: 20221027
  Serious: Yes (Other)
  Sender: FDA-Public Use
  Company Number: JP-JNJFOC-20210128927

PATIENT
  Age: 64 Year
  Sex: Female

DRUGS (2)
  1. TRABECTEDIN [Suspect]
     Active Substance: TRABECTEDIN
     Indication: Uterine leiomyosarcoma
     Route: 041
  2. FIBLAST [TRAFERMIN] [Concomitant]
     Indication: Product used for unknown indication
     Route: 065

REACTIONS (3)
  - Implant site necrosis [Recovering/Resolving]
  - Infusion site extravasation [Recovering/Resolving]
  - Neutrophil count decreased [Unknown]
